FAERS Safety Report 13659588 (Version 1)
Quarter: 2017Q2

REPORT INFORMATION
  Report Type: Report from Study
  Country: PH (occurrence: PH)
  Receive Date: 20170616
  Receipt Date: 20170616
  Transmission Date: 20170830
  Serious: Yes (Death, Life-Threatening, Hospitalization)
  Sender: FDA-Public Use
  Company Number: PHHY2017PH080463

PATIENT
  Age: 64 Year
  Sex: Female

DRUGS (4)
  1. ENTRESTO [Suspect]
     Active Substance: SACUBITRIL\VALSARTAN
     Indication: CARDIAC FAILURE
     Dosage: 100 MG, QD
     Route: 048
     Dates: start: 20170331
  2. CARDIPRES [Concomitant]
     Indication: CARDIAC FAILURE
     Dosage: 25 MG, QD
     Route: 048
     Dates: start: 20170330
  3. LOSARTAN. [Concomitant]
     Active Substance: LOSARTAN
     Indication: HYPERTENSION
     Dosage: 50 MG, QD
     Route: 048
     Dates: start: 20170330
  4. ALDACTONE [Concomitant]
     Active Substance: SPIRONOLACTONE
     Indication: FLUID RETENTION
     Dosage: 25 MG, QD
     Route: 048
     Dates: start: 20170330

REACTIONS (6)
  - Hypoxia [Fatal]
  - Pulmonary oedema [Fatal]
  - Cardiomegaly [Fatal]
  - Inappropriate schedule of drug administration [Unknown]
  - Dyspnoea [Fatal]
  - Fatigue [Fatal]

NARRATIVE: CASE EVENT DATE: 20170517
